FAERS Safety Report 7531742-7 (Version None)
Quarter: 2011Q2

REPORT INFORMATION
  Report Type: 
  Country: None (occurrence: None)
  Receive Date: 20110608
  Receipt Date: 20110526
  Transmission Date: 20111010
  Serious: Yes (Other)
  Sender: FDA-Public Use
  Company Number: DZ-ROCHE-766357

PATIENT
  Age: 40 Year
  Sex: Female

DRUGS (2)
  1. AVASTIN [Suspect]
     Indication: BREAST CANCER
     Dosage: FREQ: PER CURE.
     Route: 065
     Dates: start: 20101101, end: 20110206
  2. PACLITAXEL [Suspect]
     Indication: BREAST CANCER
     Dosage: FREQ: PER CURE.
     Route: 065
     Dates: start: 20101101, end: 20110206

REACTIONS (3)
  - SKIN ULCER HAEMORRHAGE [None]
  - SKIN ULCER [None]
  - DISEASE PROGRESSION [None]
